FAERS Safety Report 8344844-2 (Version None)
Quarter: 2012Q2

REPORT INFORMATION
  Report Type: 
  Country: None (occurrence: None)
  Receive Date: 20120508
  Receipt Date: 20120501
  Transmission Date: 20120825
  Serious: Yes (Hospitalization)
  Sender: FDA-Public Use
  Company Number: US-GLAXOSMITHKLINE-A0972066A

PATIENT
  Age: 48 Year
  Sex: Female
  Weight: 65 kg

DRUGS (1)
  1. VOTRIENT [Suspect]
     Indication: PRODUCT USED FOR UNKNOWN INDICATION
     Dosage: 800MG PER DAY
     Route: 048

REACTIONS (7)
  - MUSCLE SPASMS [None]
  - FATIGUE [None]
  - RASH MACULAR [None]
  - AGEUSIA [None]
  - PNEUMOTHORAX [None]
  - DIARRHOEA [None]
  - ORAL PAIN [None]
